FAERS Safety Report 8885329 (Version 1)
Quarter: 2012Q4

REPORT INFORMATION
  Report Type: 
  Country: BR (occurrence: BR)
  Receive Date: 20121101
  Receipt Date: 20121101
  Transmission Date: 20130627
  Serious: Yes (Death, Hospitalization)
  Sender: FDA-Public Use
  Company Number: BR-B.I. PHARMACEUTICALS,INC./RIDGEFIELD-2012-BR-01248BR

PATIENT
  Age: 82 None
  Sex: Female
  Weight: 60 kg

DRUGS (5)
  1. MICARDIS HCT [Suspect]
     Indication: HYPERTENSION
     Dosage: strength: 80/25 mg
     Route: 048
     Dates: start: 2011
  2. SELOZOK [Concomitant]
     Indication: BLOOD PRESSURE
     Dates: end: 20120926
  3. OS-CAL [Concomitant]
     Indication: MINERAL SUPPLEMENTATION
     Dates: end: 20120926
  4. ARTROLIVE [Concomitant]
     Indication: OSTEOARTHRITIS
     Dates: end: 20120926
  5. BUFFERIN [Concomitant]

REACTIONS (13)
  - Arrhythmia [Fatal]
  - Septic shock [Fatal]
  - Respiratory failure [Fatal]
  - Ischaemic stroke [Recovered/Resolved]
  - Haemorrhagic stroke [Recovered/Resolved]
  - Pneumonia [Unknown]
  - Cardiac failure [Unknown]
  - Respiratory disorder [Unknown]
  - Renal impairment [Unknown]
  - Anaemia [Unknown]
  - Pancreatic carcinoma [Unknown]
  - Urinary tract infection [Unknown]
  - Blood urine present [Unknown]
